FAERS Safety Report 6659812-6 (Version None)
Quarter: 2010Q1

REPORT INFORMATION
  Report Type: 
  Country: None (occurrence: None)
  Receive Date: 20100330
  Receipt Date: 20100330
  Transmission Date: 20100710
  Serious: Yes (Hospitalization)
  Sender: FDA-Public Use
  Company Number: None

PATIENT
  Age: 56 Year
  Sex: Male
  Weight: 61.2 kg

DRUGS (1)
  1. CISPLATIN [Suspect]
     Indication: NEOPLASM
     Dosage: 110 MG ONCE IV
     Route: 042
     Dates: start: 20100316, end: 20100316

REACTIONS (1)
  - NEUTROPENIA [None]
